FAERS Safety Report 9628254 (Version 1)
Quarter: 2013Q4

REPORT INFORMATION
  Report Type: Spontaneous
  Country: JP (occurrence: JP)
  Receive Date: 20131017
  Receipt Date: 20131017
  Transmission Date: 20140711
  Serious: Yes (Other)
  Sender: FDA-Public Use
  Company Number: JP-009507513-1310JPN006902

PATIENT
  Age: 16 Year
  Sex: Male

DRUGS (1)
  1. GASTER D [Suspect]
     Dosage: UNK
     Route: 048
     Dates: start: 201211, end: 201211

REACTIONS (1)
  - Erythema multiforme [Unknown]
